FAERS Safety Report 8849301 (Version 2)
Quarter: 2012Q4

REPORT INFORMATION
  Report Type: 
  Country: JP (occurrence: JP)
  Receive Date: 20121019
  Receipt Date: 20121102
  Transmission Date: 20130627
  Serious: Yes (Death, Other)
  Sender: FDA-Public Use
  Company Number: PHHY2012JP092577

PATIENT
  Age: 76 Year
  Sex: Male

DRUGS (2)
  1. TEGRETOL [Suspect]
     Indication: CONVULSION
     Route: 048
  2. MIDAZOLAM [Suspect]
     Route: 048

REACTIONS (9)
  - Cardiac failure [Fatal]
  - Purulent pericarditis [Fatal]
  - Respiratory failure [Fatal]
  - Lymphoma [Unknown]
  - Inappropriate antidiuretic hormone secretion [Unknown]
  - Pneumonia [Unknown]
  - Respiratory disorder [Unknown]
  - General physical health deterioration [Unknown]
  - Hypoalbuminaemia [Unknown]
